FAERS Safety Report 14985151 (Version 1)
Quarter: 2018Q2

REPORT INFORMATION
  Report Type: Spontaneous
  Country: DK (occurrence: DK)
  Receive Date: 20180607
  Receipt Date: 20180607
  Transmission Date: 20180711
  Serious: Yes (Other)
  Sender: FDA-Public Use
  Company Number: DK-LEO PHARMA-309271

PATIENT
  Age: 4 Year
  Sex: Female

DRUGS (4)
  1. FUCICORT [Concomitant]
     Active Substance: BETAMETHASONE VALERATE\FUSIDIC ACID
     Indication: DERMATITIS ATOPIC
     Dosage: 1 LUBRICATION NEED-NO MORE THAN TWICE A DAY. STRENGTH: 1 + 20 MG / G.
     Route: 003
     Dates: start: 20140827
  2. PROTOPIC [Suspect]
     Active Substance: TACROLIMUS
     Indication: DERMATITIS ATOPIC
     Dosage: DOSAGE: 2 TIMES DAILY. STRENGTH: 0.1%
     Route: 003
     Dates: start: 20150216, end: 20180518
  3. ELIDEL [Suspect]
     Active Substance: PIMECROLIMUS
     Indication: DERMATITIS ATOPIC
     Dosage: DOSAGE: 2 BRUSHINGS DAILY. STRENGTH: 1%.
     Route: 003
     Dates: start: 20141228, end: 20180518
  4. LOCOID CRELO [Concomitant]
     Indication: DERMATITIS ATOPIC
     Dosage: STYRKE: 0,1 %.
     Route: 003
     Dates: start: 20140211, end: 20180518

REACTIONS (3)
  - Off label use [Unknown]
  - Growth retardation [Unknown]
  - Incorrect drug administration duration [Unknown]

NARRATIVE: CASE EVENT DATE: 2014
